FAERS Safety Report 25214578 (Version 1)
Quarter: 2025Q2

REPORT INFORMATION
  Report Type: Spontaneous
  Country: GB (occurrence: GB)
  Receive Date: 20250418
  Receipt Date: 20250418
  Transmission Date: 20250717
  Serious: Yes (Hospitalization, Other)
  Sender: EXELIXIS
  Company Number: GB-IPSEN Group, Research and Development-2024-26667

PATIENT
  Age: 30 Year
  Sex: Female
  Weight: 58 kg

DRUGS (2)
  1. CABOMETYX [Suspect]
     Active Substance: CABOZANTINIB S-MALATE
     Indication: Osteosarcoma
     Dosage: 60 MG/DAY (30 TABLETS/ 1 BOTTLE)
     Route: 065
     Dates: end: 20250227
  2. CABOMETYX [Suspect]
     Active Substance: CABOZANTINIB S-MALATE
     Indication: Off label use
     Route: 065

REACTIONS (4)
  - Pneumothorax [Recovered/Resolved]
  - Tumour cavitation [Unknown]
  - Metastases to lung [Unknown]
  - Off label use [Unknown]

NARRATIVE: CASE EVENT DATE: 20250227
